FAERS Safety Report 9769514 (Version 1)
Quarter: 2013Q4

REPORT INFORMATION
  Report Type: Spontaneous
  Country: NL (occurrence: NL)
  Receive Date: 20131218
  Receipt Date: 20131218
  Transmission Date: 20140711
  Serious: Yes (Hospitalization)
  Sender: FDA-Public Use
  Company Number: NL-JNJFOC-20131205519

PATIENT
  Age: 43 Year
  Sex: Female
  Weight: 62 kg

DRUGS (4)
  1. TOPAMAX [Suspect]
     Indication: HEADACHE
     Route: 048
     Dates: start: 20120101, end: 20130327
  2. PANTOPRAZOL [Concomitant]
     Route: 048
  3. SALBUTAMOL SULFATE [Concomitant]
     Route: 055
  4. PHENYTOIN SODIUM [Concomitant]
     Route: 048

REACTIONS (2)
  - Hospitalisation [Unknown]
  - Weight decreased [Recovered/Resolved]
